FAERS Safety Report 8605074-X (Version None)
Quarter: 2012Q3

REPORT INFORMATION
  Report Type: 
  Country: None (occurrence: None)
  Receive Date: 20120820
  Receipt Date: 20120809
  Transmission Date: 20120928
  Serious: Yes (Hospitalization)
  Sender: FDA-Public Use
  Company Number: FR-SANOFI-AVENTIS-2012SA057016

PATIENT
  Age: 78 Year
  Sex: Female

DRUGS (6)
  1. BISOPROLOL FUMARATE [Suspect]
     Route: 048
  2. LANTUS [Suspect]
     Route: 058
  3. RABEPRAZOLE SODIUM [Suspect]
     Route: 048
     Dates: start: 20120401, end: 20120704
  4. NICARDIPINE HCL [Suspect]
     Route: 048
  5. ENALAPRIL MALEATE [Suspect]
     Route: 048
     Dates: end: 20120704
  6. ACETAMINOPHEN [Suspect]
     Dosage: DOSE:3 UNIT(S)
     Route: 048

REACTIONS (1)
  - DYSGEUSIA [None]
